FAERS Safety Report 9559286 (Version 1)
Quarter: 2013Q3

REPORT INFORMATION
  Report Type: Spontaneous
  Country: US (occurrence: None)
  Receive Date: 20130906
  Receipt Date: 20130906
  Transmission Date: 20140515
  Serious: No
  Sender: FDA-Public Use
  Company Number: 163-POMAL-13061840

PATIENT
  Age: 51 Year
  Sex: Female

DRUGS (8)
  1. POMALYST (POMALIDOMIDE) (4 MILLIGRAM, CAPSULES) [Suspect]
     Indication: PLASMA CELL MYELOMA
     Dosage: 4 MG, 1 IN 1 D, PO
     Route: 048
     Dates: start: 201304, end: 2013
  2. DEXAMETHASONE (DEXAMETHASONE) [Concomitant]
  3. MEGESTROL ACETATE (MEGESTROL ACETATE) [Concomitant]
  4. BENADRYL [Concomitant]
  5. ACYCLOVIR (ACICLOVIR) [Concomitant]
  6. ONE-A-DAY WOMEN^S (ONE-A-DAY WOMEN^S) [Concomitant]
  7. CALCIUM CITRATE-VIT [Concomitant]
  8. ASPIRIN [Concomitant]

REACTIONS (1)
  - No adverse event [None]
